FAERS Safety Report 15474893 (Version 1)
Quarter: 2018Q4

REPORT INFORMATION
  Report Type: Spontaneous
  Country: CZ (occurrence: CZ)
  Receive Date: 20181008
  Receipt Date: 20181008
  Transmission Date: 20190205
  Serious: Yes (Other)
  Sender: FDA-Public Use
  Company Number: CZ-CELGENEUS-CZE-20180907456

PATIENT
  Age: 56 Year
  Sex: Male
  Weight: 83 kg

DRUGS (1)
  1. OTEZLA [Suspect]
     Active Substance: APREMILAST
     Indication: PSORIASIS
     Route: 048

REACTIONS (6)
  - Fatigue [Unknown]
  - Vision blurred [Unknown]
  - Diabetes mellitus [Unknown]
  - Abdominal pain [Unknown]
  - Frequent bowel movements [Unknown]
  - Blood pressure fluctuation [Unknown]
